FAERS Safety Report 15541582 (Version 2)
Quarter: 2018Q4

REPORT INFORMATION
  Report Type: Spontaneous
  Country: JP (occurrence: JP)
  Receive Date: 20181023
  Receipt Date: 20181126
  Transmission Date: 20190205
  Serious: Yes (Other)
  Sender: FDA-Public Use
  Company Number: JP-GLAXOSMITHKLINE-JP2018JPN189183

PATIENT
  Age: 63 Year
  Sex: Male

DRUGS (1)
  1. ZAGALLO [Suspect]
     Active Substance: DUTASTERIDE
     Dosage: UNK
     Route: 048

REACTIONS (1)
  - Neoplasm malignant [Unknown]
